FAERS Safety Report 23220538 (Version 1)
Quarter: 2023Q4

REPORT INFORMATION
  Report Type: Spontaneous
  Country: FR (occurrence: FR)
  Receive Date: 20231123
  Receipt Date: 20231123
  Transmission Date: 20240110
  Serious: Yes (Death, Other)
  Sender: FDA-Public Use
  Company Number: None

PATIENT
  Age: 57 Year
  Sex: Female
  Weight: 55 kg

DRUGS (5)
  1. CYCLOPHOSPHAMIDE [Suspect]
     Active Substance: CYCLOPHOSPHAMIDE
     Indication: Triple negative breast cancer
     Dosage: 800 MG, ONCE CYCLICAL, START DATE: FEB-2023, LYOPHILIZATE FOR SOLUTION INJECTABLE)
     Route: 042
     Dates: end: 20230717
  2. EPIRUBICIN HYDROCHLORIDE [Suspect]
     Active Substance: EPIRUBICIN HYDROCHLORIDE
     Indication: Triple negative breast cancer
     Dosage: 160 MG, ONCE CYCLICAL, START DATE: FEB-2023, SOLUTION FOR PERFUSION
     Route: 042
     Dates: end: 20230717
  3. KEYTRUDA [Suspect]
     Active Substance: PEMBROLIZUMAB
     Indication: Triple negative breast cancer
     Dosage: 200 MG, ONCE CYCLICAL, START DATE: FEB-2023)
     Route: 042
     Dates: end: 20230717
  4. PACLITAXEL [Concomitant]
     Active Substance: PACLITAXEL
     Indication: Triple negative breast cancer
     Dosage: 120 MG, ONCE CYCLICAL, START DATE: FEB-2023, DOSAGE FORM: SOLUTION FOR DILUTION FOR PERFUSION
     Route: 042
     Dates: end: 20230703
  5. CARBOPLATIN [Concomitant]
     Active Substance: CARBOPLATIN
     Indication: Triple negative breast cancer
     Dosage: 130 MG, ONCE CYCLICAL, START DATE: FEB-2023, SOLUTION FOR PERFUSION
     Route: 042
     Dates: end: 20230703

REACTIONS (3)
  - Immune-mediated pancytopenia [Fatal]
  - Acute respiratory distress syndrome [Fatal]
  - Septic shock [Fatal]

NARRATIVE: CASE EVENT DATE: 20230726
